FAERS Safety Report 8507749-X (Version None)
Quarter: 2012Q3

REPORT INFORMATION
  Report Type: 
  Country: None (occurrence: None)
  Receive Date: 20120709
  Receipt Date: 20120709
  Transmission Date: 20120928
  Serious: No
  Sender: FDA-Public Use
  Company Number: None

PATIENT
  Sex: Female
  Weight: 88.4514 kg

DRUGS (2)
  1. LYRICA [Suspect]
     Indication: PAIN
     Dosage: 150 MG (REDUCED 2 X DAY ; 75 MG 2 X DAY
     Dates: start: 20120308, end: 20120418
  2. LYRICA [Suspect]
     Indication: PAIN
     Dosage: 150 MG (REDUCED 2 X DAY ; 75 MG 2 X DAY
     Dates: start: 20120418, end: 20120625

REACTIONS (4)
  - DYSKINESIA [None]
  - TIC [None]
  - OEDEMA PERIPHERAL [None]
  - JOINT SWELLING [None]
